FAERS Safety Report 5769932-6 (Version None)
Quarter: 2008Q2

REPORT INFORMATION
  Report Type: 
  Country: None (occurrence: None)
  Receive Date: 20080613
  Receipt Date: 20080411
  Transmission Date: 20081010
  Serious: No
  Sender: FDA-Public Use
  Company Number: US-ABBOTT-08P-163-0447187-00

PATIENT
  Sex: Male
  Weight: 118.04 kg

DRUGS (8)
  1. HUMIRA [Suspect]
     Indication: PSORIASIS
     Route: 058
     Dates: start: 20061201
  2. HUMIRA [Suspect]
     Indication: PSORIATIC ARTHROPATHY
  3. ALLOPURINOL [Concomitant]
     Indication: GOUT
     Route: 048
  4. IRBESARTAN [Concomitant]
     Indication: DRUG USE FOR UNKNOWN INDICATION
     Route: 048
  5. CYCLOSPORINE [Concomitant]
     Indication: PSORIASIS
     Route: 048
  6. CYCLOSPORINE [Concomitant]
     Indication: PSORIATIC ARTHROPATHY
  7. FLUOXETINE HCL [Concomitant]
     Indication: DRUG USE FOR UNKNOWN INDICATION
  8. ASPIRIN [Concomitant]
     Indication: DRUG USE FOR UNKNOWN INDICATION
     Route: 048

REACTIONS (1)
  - PROTEINURIA [None]
